FAERS Safety Report 9885232 (Version 1)
Quarter: 2014Q1

REPORT INFORMATION
  Report Type: Spontaneous
  Country: US (occurrence: US)
  Receive Date: 20140210
  Receipt Date: 20140210
  Transmission Date: 20141002
  Serious: No
  Sender: FDA-Public Use
  Company Number: US-PFIZER INC-2014034320

PATIENT
  Age: 74 Year
  Sex: Male

DRUGS (8)
  1. CELEBREX [Suspect]
     Dosage: UNK
  2. DESYREL [Suspect]
     Dosage: UNK
  3. VALIUM [Suspect]
     Dosage: UNK
  4. VIOXX [Suspect]
     Dosage: UNK
  5. LORAGA [Suspect]
     Dosage: UNK
  6. ACETAMINOPHEN\ASPIRIN\CODEINE PHOSPHATE [Suspect]
     Dosage: UNK
  7. ANTILIRIUM [Suspect]
     Dosage: UNK
  8. TRAZODONE [Suspect]
     Dosage: UNK

REACTIONS (1)
  - Drug hypersensitivity [Unknown]
